FAERS Safety Report 15471679 (Version 3)
Quarter: 2018Q4

REPORT INFORMATION
  Report Type: Report from Study
  Country: DE (occurrence: DE)
  Receive Date: 20181008
  Receipt Date: 20181213
  Transmission Date: 20190205
  Serious: Yes (Hospitalization)
  Sender: FDA-Public Use
  Company Number: DE-BIOGEN-2018BI00640601

PATIENT
  Age: 30 Year
  Sex: Female
  Weight: 50 kg

DRUGS (5)
  1. VITAMIN D [Concomitant]
     Active Substance: CHOLECALCIFEROL
     Indication: VITAMIN SUPPLEMENTATION
     Route: 048
     Dates: start: 201409
  2. PENICILLIN [Concomitant]
     Active Substance: PENICILLIN
     Indication: TONSILLITIS
     Dosage: 1.5 MIO
     Route: 048
     Dates: start: 20180119
  3. FUCICORT CREME [Concomitant]
     Indication: NEURODERMATITIS
     Route: 003
     Dates: start: 201512
  4. TYSABRI [Suspect]
     Active Substance: NATALIZUMAB
     Indication: MULTIPLE SCLEROSIS
     Dosage: INFUSED OVER 1 HOUR
     Route: 042
     Dates: start: 200805
  5. AMPICILLIN/SULBACTAM [Concomitant]
     Active Substance: AMPICILLIN SODIUM\SULBACTAM SODIUM
     Indication: TONSILLITIS
     Dosage: 1.5 MIO
     Route: 042
     Dates: start: 20180108, end: 20180124

REACTIONS (2)
  - Cystitis glandularis [Recovered/Resolved]
  - Urinary tract infection [Unknown]

NARRATIVE: CASE EVENT DATE: 20180821
